FAERS Safety Report 16869598 (Version 1)
Quarter: 2019Q3

REPORT INFORMATION
  Report Type: Spontaneous
  Country: US (occurrence: US)
  Receive Date: 20190930
  Receipt Date: 20190930
  Transmission Date: 20191005
  Serious: Yes (Other)
  Sender: FDA-Public Use
  Company Number: US-BRISTOL-MYERS SQUIBB COMPANY-BMS-2019-092330

PATIENT
  Sex: Female

DRUGS (1)
  1. OPDIVO [Suspect]
     Active Substance: NIVOLUMAB
     Indication: INVASIVE LOBULAR BREAST CARCINOMA
     Dosage: UNK
     Route: 065
     Dates: start: 2017

REACTIONS (3)
  - Rheumatoid arthritis [Unknown]
  - Intentional product use issue [Unknown]
  - Conjunctivitis [Unknown]
